FAERS Safety Report 4656613-5 (Version None)
Quarter: 2005Q2

REPORT INFORMATION
  Report Type: 
  Country: None (occurrence: None)
  Receive Date: 20050509
  Receipt Date: 20050307
  Transmission Date: 20051028
  Serious: Yes (Hospitalization, Other)
  Sender: FDA-Public Use
  Company Number: 2005UW03705

PATIENT
  Age: 82 Year
  Sex: Male

DRUGS (6)
  1. CRESTOR [Suspect]
     Indication: BLOOD CHOLESTEROL INCREASED
     Route: 048
     Dates: start: 20040301, end: 20050101
  2. ACCURETIC [Concomitant]
     Dosage: 20/12.5
     Route: 048
  3. AZITHROMYCIN [Concomitant]
     Dates: start: 20050117
  4. CEFUROXIME [Concomitant]
     Route: 042
     Dates: start: 20050117
  5. ASPIRIN [Concomitant]
     Route: 048
  6. NIFEDIPINE [Concomitant]

REACTIONS (7)
  - ASTHENIA [None]
  - COUGH [None]
  - FATIGUE [None]
  - MALAISE [None]
  - PNEUMONIA [None]
  - PYREXIA [None]
  - RHABDOMYOLYSIS [None]
